FAERS Safety Report 8164685 (Version 2)
Quarter: 2013Q1

REPORT INFORMATION
  Report Type: Spontaneous
  Country: FR (occurrence: FR)
  Receive Date: 20110930
  Receipt Date: 20130215
  Transmission Date: 20140127
  Serious: Yes (Hospitalization, Other)
  Sender: FDA-Public Use
  Company Number: PHHY2011FR82671

PATIENT
  Age: 77 Year
  Sex: Male

DRUGS (8)
  1. EXELON PATCH [Suspect]
     Indication: DEMENTIA ALZHEIMER^S TYPE
     Dosage: 9.5 MG/24 HR
     Route: 062
  2. EXELON PATCH [Suspect]
     Dosage: 4.6 MG DAILY
     Route: 062
     Dates: start: 20091019
  3. SEROPLEX [Suspect]
     Indication: DEMENTIA ALZHEIMER^S TYPE
     Dosage: 15 MG (10 MG IN THE MORNING AND 5 MG IN THE EVENING)
  4. ALDACTAZINE [Concomitant]
     Dosage: 0.5 DF, QD
  5. NEURONTIN [Concomitant]
     Dosage: 600 MG DAILY
     Dates: start: 20091012
  6. NEURONTIN [Concomitant]
     Dosage: 1200 MG DAILY
  7. GARDENAL [Concomitant]
     Dosage: 10 MG, QD
  8. TIAPRIDAL [Concomitant]
     Dosage: 100 MG, TID

REACTIONS (8)
  - Status epilepticus [Recovering/Resolving]
  - Convulsion [Recovering/Resolving]
  - Renal failure [Recovering/Resolving]
  - Creatinine renal clearance decreased [Recovering/Resolving]
  - Suicidal ideation [Recovering/Resolving]
  - Confusional state [Recovering/Resolving]
  - Agitation [Recovering/Resolving]
  - Anxiety [Recovering/Resolving]
